FAERS Safety Report 8757342 (Version 1)
Quarter: 2012Q4

REPORT INFORMATION
  Report Type: 
  Country: US (occurrence: US)
  Receive Date: 20120828
  Receipt Date: 20120828
  Transmission Date: 20130627
  Serious: Yes (Hospitalization)
  Sender: FDA-Public Use
  Company Number: US-MYLANLABS-2012S1016968

PATIENT
  Age: 53 Year
  Sex: Female

DRUGS (7)
  1. HYDROXYZINE [Suspect]
     Indication: URTICARIA
     Dosage: as needed
     Route: 065
  2. HYDROCODONE [Interacting]
     Route: 065
  3. PAROXETINE [Interacting]
     Dosage: 20mg daily
     Route: 065
  4. IBUPROFEN [Concomitant]
     Route: 065
  5. VERAPAMIL [Concomitant]
     Dosage: extended-release
     Route: 065
  6. FAMOTIDINE [Concomitant]
     Indication: URTICARIA
     Route: 065
  7. PREDNISONE [Concomitant]
     Indication: URTICARIA
     Dosage: 40mg daily
     Route: 065

REACTIONS (4)
  - Mental status changes [Recovered/Resolved]
  - Asthenia [Unknown]
  - Drug interaction [Recovered/Resolved]
  - Drug clearance decreased [Recovered/Resolved]
